FAERS Safety Report 16953753 (Version 6)
Quarter: 2020Q1

REPORT INFORMATION
  Report Type: Report from Study
  Country: AU (occurrence: AU)
  Receive Date: 20191023
  Receipt Date: 20200226
  Transmission Date: 20200409
  Serious: Yes (Death, Hospitalization)
  Sender: FDA-Public Use
  Company Number: AU-TOLMAR, INC.-19AU000740

PATIENT
  Age: 66 Year
  Sex: Male

DRUGS (4)
  1. ELIGARD [Suspect]
     Active Substance: LEUPROLIDE ACETATE
     Indication: PROSTATE CANCER
     Dosage: 7.5 MG, 1/MONTH
     Route: 058
     Dates: start: 20180226
  2. LYRICA [Concomitant]
     Active Substance: PREGABALIN
     Indication: PRODUCT USED FOR UNKNOWN INDICATION
     Route: 065
  3. CELEBREX [Concomitant]
     Active Substance: CELECOXIB
     Indication: PRODUCT USED FOR UNKNOWN INDICATION
     Route: 065
  4. CARVEDILOL. [Concomitant]
     Active Substance: CARVEDILOL
     Indication: PRODUCT USED FOR UNKNOWN INDICATION
     Route: 065

REACTIONS (14)
  - Pain in extremity [Unknown]
  - Weight decreased [Unknown]
  - Fall [Unknown]
  - Death [Fatal]
  - Urinary incontinence [Unknown]
  - Yellow skin [Unknown]
  - Haematuria [Not Recovered/Not Resolved]
  - Abdominal pain lower [Unknown]
  - Dizziness [Unknown]
  - Back pain [Unknown]
  - Pelvic fracture [Unknown]
  - Decreased appetite [Unknown]
  - Haemorrhage urinary tract [Not Recovered/Not Resolved]
  - Hypotension [Unknown]

NARRATIVE: CASE EVENT DATE: 2019
